FAERS Safety Report 7572295-7 (Version None)
Quarter: 2011Q2

REPORT INFORMATION
  Report Type: 
  Country: None (occurrence: None)
  Receive Date: 20110624
  Receipt Date: 20080814
  Transmission Date: 20111010
  Serious: Yes (Other)
  Sender: FDA-Public Use
  Company Number: CA-GENENTECH-320503

PATIENT
  Sex: Male
  Weight: 68 kg

DRUGS (1)
  1. XOLAIR [Suspect]
     Indication: ASTHMA
     Dosage: 300 MG, UNKNOWN
     Route: 058
     Dates: start: 20080623

REACTIONS (8)
  - HALLUCINATION [None]
  - CHILLS [None]
  - HYPOAESTHESIA [None]
  - VOMITING [None]
  - NAUSEA [None]
  - PYREXIA [None]
  - FEELING COLD [None]
  - HEADACHE [None]
